FAERS Safety Report 10149180 (Version 6)
Quarter: 2018Q3

REPORT INFORMATION
  Report Type: Spontaneous
  Country: DK (occurrence: DK)
  Receive Date: 20140502
  Receipt Date: 20180903
  Transmission Date: 20181010
  Serious: Yes (Other)
  Sender: FDA-Public Use
  Company Number: DK-AMGEN-DNKSP2014020038

PATIENT
  Age: 85 Year
  Sex: Female
  Weight: 60 kg

DRUGS (2)
  1. LANSOPRAZOLE. [Concomitant]
     Active Substance: LANSOPRAZOLE
     Dosage: 15 MG, UNK
  2. PROLIA [Suspect]
     Active Substance: DENOSUMAB
     Indication: OSTEOPOROSIS
     Dosage: 60 MG/ML, Q6MO
     Route: 058
     Dates: start: 20131007, end: 20140103

REACTIONS (38)
  - Weight decreased [Recovering/Resolving]
  - Rash papular [Recovering/Resolving]
  - Pruritus generalised [Recovering/Resolving]
  - Pain [Unknown]
  - Vulvovaginal pruritus [Recovering/Resolving]
  - Urinary tract infection [Recovering/Resolving]
  - Rash generalised [Recovering/Resolving]
  - Groin abscess [Recovering/Resolving]
  - Skin burning sensation [Recovering/Resolving]
  - Eye inflammation [Recovering/Resolving]
  - Vaginal infection [Recovering/Resolving]
  - Dyspepsia [Recovering/Resolving]
  - Vulvovaginal discomfort [Recovering/Resolving]
  - Cystitis [Recovering/Resolving]
  - Vaginal abscess [Recovering/Resolving]
  - Depressed mood [Recovering/Resolving]
  - Papule [Recovered/Resolved]
  - Skin atrophy [Recovering/Resolving]
  - Generalised erythema [Recovered/Resolved]
  - Pruritus [Recovering/Resolving]
  - Erythema [Recovering/Resolving]
  - Vulvovaginal burning sensation [Recovering/Resolving]
  - Back pain [Recovering/Resolving]
  - Body height decreased [Recovering/Resolving]
  - Blister [Recovering/Resolving]
  - Oral pain [Recovering/Resolving]
  - Nausea [Recovering/Resolving]
  - Lichen planus [Recovering/Resolving]
  - Decreased appetite [Recovering/Resolving]
  - Skin exfoliation [Recovering/Resolving]
  - Abdominal pain [Recovering/Resolving]
  - Alopecia [Recovering/Resolving]
  - Discomfort [Recovering/Resolving]
  - Rash papular [Recovering/Resolving]
  - Skin mass [Recovering/Resolving]
  - Oral disorder [Unknown]
  - Lichenoid keratosis [Recovering/Resolving]
  - Hiatus hernia [Recovering/Resolving]

NARRATIVE: CASE EVENT DATE: 2013
